FAERS Safety Report 9210242 (Version 1)
Quarter: 2013Q2

REPORT INFORMATION
  Report Type: Spontaneous
  Country: GB (occurrence: GB)
  Receive Date: 20130404
  Receipt Date: 20130404
  Transmission Date: 20140414
  Serious: Yes (Hospitalization, Disabling)
  Sender: FDA-Public Use
  Company Number: GB-ROCHE-1208136

PATIENT
  Age: 63 Year
  Sex: Female

DRUGS (10)
  1. BONVIVA [Suspect]
     Indication: METASTASES TO BONE
     Route: 048
     Dates: start: 2003, end: 20110517
  2. AMLODIPINE [Concomitant]
     Route: 048
  3. ASPIRIN [Concomitant]
     Route: 048
  4. CELIPROLOL [Concomitant]
     Route: 048
  5. FENTANYL [Concomitant]
     Indication: PAIN
     Route: 061
  6. LETROZOLE [Concomitant]
     Indication: METASTASES TO BONE
     Route: 048
     Dates: start: 2003
  7. METOCLOPRAMIDE [Concomitant]
     Route: 048
  8. OXYNORM [Concomitant]
     Dosage: AS NECESSARY
     Route: 048
  9. PARACETAMOL [Concomitant]
     Route: 065
  10. HYDROCHLOROTHIAZIDE/IRBESARTAN [Concomitant]
     Route: 048

REACTIONS (3)
  - Gastric disorder [Unknown]
  - Infection [Not Recovered/Not Resolved]
  - Osteonecrosis of jaw [Not Recovered/Not Resolved]
